FAERS Safety Report 26195969 (Version 1)
Quarter: 2025Q4

REPORT INFORMATION
  Report Type: Spontaneous
  Country: JP (occurrence: JP)
  Receive Date: 20251224
  Receipt Date: 20251224
  Transmission Date: 20260118
  Serious: Yes (Hospitalization)
  Sender: MERCK KGAA
  Company Number: JP-Merck Healthcare KGaA-2025065661

PATIENT
  Age: 83 Year
  Sex: Female

DRUGS (3)
  1. METGLUCO [Suspect]
     Active Substance: METFORMIN HYDROCHLORIDE
     Indication: Diabetes mellitus
  2. GLYBURIDE [Suspect]
     Active Substance: GLYBURIDE
     Indication: Diabetes mellitus
     Dosage: 2.5 (UNIT UNSPECIFIED)
  3. VOGLIBOSE [Suspect]
     Active Substance: VOGLIBOSE
     Indication: Diabetes mellitus
     Dosage: 0.3 (UNIT UNSPECIFIED)

REACTIONS (4)
  - Glycosylated haemoglobin increased [Unknown]
  - Hypoglycaemia [Unknown]
  - Nasopharyngitis [Unknown]
  - Decreased appetite [Unknown]

NARRATIVE: CASE EVENT DATE: 20120701
